FAERS Safety Report 9088327 (Version 1)
Quarter: 2013Q1

REPORT INFORMATION
  Report Type: Report from Study
  Country: US (occurrence: US)
  Receive Date: 20130201
  Receipt Date: 20130201
  Transmission Date: 20140127
  Serious: No
  Sender: FDA-Public Use
  Company Number: US-ABBOTT-12P-163-1018611-00

PATIENT
  Sex: Female
  Weight: 72.64 kg

DRUGS (4)
  1. HUMIRA [Suspect]
     Indication: RHEUMATOID ARTHRITIS
     Dates: start: 2010
  2. FLUOXETINE [Concomitant]
     Indication: DEPRESSION
  3. BUPROPRIONE [Concomitant]
     Indication: DEPRESSION
  4. PROPANOLOL [Concomitant]
     Indication: ESSENTIAL TREMOR

REACTIONS (1)
  - Sinusitis [Recovered/Resolved]
